FAERS Safety Report 23160146 (Version 3)
Quarter: 2023Q4

REPORT INFORMATION
  Report Type: Spontaneous
  Country: US (occurrence: US)
  Receive Date: 20231108
  Receipt Date: 20231228
  Transmission Date: 20240109
  Serious: No
  Sender: FDA-Public Use
  Company Number: US-PFIZER INC-202300348062

PATIENT
  Age: 16 Year
  Sex: Male
  Weight: 47.619 kg

DRUGS (1)
  1. GENOTROPIN [Suspect]
     Active Substance: SOMATROPIN
     Dosage: UNK, 1X/DAY [DAILY DOSE WITH UNITS: 2.4]

REACTIONS (2)
  - Product dose omission issue [Unknown]
  - Device information output issue [Unknown]
